FAERS Safety Report 20656789 (Version 1)
Quarter: 2022Q1

REPORT INFORMATION
  Report Type: Spontaneous
  Country: CA (occurrence: CA)
  Receive Date: 20220331
  Receipt Date: 20220331
  Transmission Date: 20220423
  Serious: Yes (Other)
  Sender: FDA-Public Use
  Company Number: CA-CELLTRION INC.-2022CA003848

PATIENT

DRUGS (4)
  1. INFLECTRA [Suspect]
     Active Substance: INFLIXIMAB-DYYB
     Indication: Rheumatoid arthritis
     Dosage: 300 MG, EVERY 8 WEEK
     Route: 042
     Dates: start: 20210920
  2. INFLECTRA [Suspect]
     Active Substance: INFLIXIMAB-DYYB
     Dosage: 300 MG, EVERY 8 WEEK
     Route: 042
     Dates: start: 20220120
  3. INFLECTRA [Suspect]
     Active Substance: INFLIXIMAB-DYYB
     Dosage: 300 MG, EVERY 8 WEEK
     Route: 042
     Dates: start: 20220317
  4. METHOTREXATE [Concomitant]
     Active Substance: METHOTREXATE
     Dosage: UNK

REACTIONS (9)
  - Atrial fibrillation [Not Recovered/Not Resolved]
  - Off label use [Unknown]
  - COVID-19 [Unknown]
  - Dizziness [Not Recovered/Not Resolved]
  - Mastitis [Recovered/Resolved]
  - Palpitations [Not Recovered/Not Resolved]
  - Hypertension [Not Recovered/Not Resolved]
  - Erythema [Recovered/Resolved]
  - Breast pain [Recovered/Resolved]

NARRATIVE: CASE EVENT DATE: 20210920
